FAERS Safety Report 8045064-1 (Version None)
Quarter: 2012Q1

REPORT INFORMATION
  Report Type: 
  Country: None (occurrence: None)
  Receive Date: 20120113
  Receipt Date: 20120104
  Transmission Date: 20120608
  Serious: Yes (Hospitalization)
  Sender: FDA-Public Use
  Company Number: PHHY2012BE002605

PATIENT
  Sex: Female

DRUGS (2)
  1. ZOLEDRONOC ACID [Suspect]
     Indication: OSTEOPOROSIS
     Dosage: 5 MG,  ONCE-YEARLY
     Route: 042
  2. CALCIUM SANDOZ [Concomitant]

REACTIONS (6)
  - FALL [None]
  - GENERAL PHYSICAL HEALTH DETERIORATION [None]
  - INJURY [None]
  - HIP FRACTURE [None]
  - DECREASED APPETITE [None]
  - BACK PAIN [None]
